FAERS Safety Report 12614477 (Version 1)
Quarter: 2016Q3

REPORT INFORMATION
  Report Type: Spontaneous
  Country: US (occurrence: None)
  Receive Date: 20160801
  Receipt Date: 20160801
  Transmission Date: 20161109
  Serious: No
  Sender: FDA-Public Use
  Company Number: None

PATIENT
  Age: 68 Year
  Sex: Male
  Weight: 88 kg

DRUGS (2)
  1. KCL 20MEQ PACKET [Suspect]
     Active Substance: POTASSIUM CHLORIDE
     Indication: COLECTOMY
     Dosage: 2 PACKETS BID PO (AFTER DISSOLVING)
     Route: 048
     Dates: start: 20160716
  2. KCL 20MEQ PACKET [Suspect]
     Active Substance: POTASSIUM CHLORIDE
     Indication: HYPOKALAEMIA
     Dosage: 2 PACKETS BID PO (AFTER DISSOLVING)
     Route: 048
     Dates: start: 20160716

REACTIONS (4)
  - Product taste abnormal [None]
  - Product physical consistency issue [None]
  - Product odour abnormal [None]
  - Underdose [None]

NARRATIVE: CASE EVENT DATE: 20160716
